FAERS Safety Report 7680158-1 (Version None)
Quarter: 2011Q3

REPORT INFORMATION
  Report Type: 
  Country: None (occurrence: None)
  Receive Date: 20110812
  Receipt Date: 20110808
  Transmission Date: 20111222
  Serious: Yes (Death)
  Sender: FDA-Public Use
  Company Number: AU-ROCHE-795709

PATIENT
  Age: 48 Year

DRUGS (5)
  1. NORTRIPTYLINE HCL [Suspect]
     Route: 065
  2. AMITRIPTYLINE HCL [Suspect]
     Route: 065
  3. METHAMPHETAMINE HYDROCHLORIDE [Suspect]
     Route: 065
  4. METHADONE HYDROCHLORIDE [Suspect]
     Route: 065
  5. DIAZEPAM [Suspect]
     Route: 065

REACTIONS (3)
  - RESPIRATORY DEPRESSION [None]
  - TOXICITY TO VARIOUS AGENTS [None]
  - ACCIDENTAL OVERDOSE [None]
